FAERS Safety Report 4430866-0 (Version None)
Quarter: 2004Q3

REPORT INFORMATION
  Report Type: 
  Country: None (occurrence: None)
  Receive Date: 20040823
  Receipt Date: 20040727
  Transmission Date: 20050211
  Serious: Yes (Hospitalization)
  Sender: FDA-Public Use
  Company Number: 2004JP001386

PATIENT
  Age: 20 Year
  Sex: Male

DRUGS (3)
  1. CEFAZOLIN [Suspect]
     Indication: INFECTION PROPHYLAXIS
     Dosage: 1G TWICE PER DAY
     Route: 042
     Dates: start: 20040714, end: 20040714
  2. XYLOCAINE [Concomitant]
     Dates: start: 20040714, end: 20040714
  3. LACTEC [Concomitant]
     Dates: start: 20040714, end: 20040714

REACTIONS (4)
  - ANAPHYLACTOID SHOCK [None]
  - BLOOD PRESSURE DECREASED [None]
  - GENERALISED ERYTHEMA [None]
  - NASAL CONGESTION [None]
